FAERS Safety Report 9458990 (Version 3)
Quarter: 2013Q3

REPORT INFORMATION
  Report Type: Spontaneous
  Country: US (occurrence: US)
  Receive Date: 20130814
  Receipt Date: 20130927
  Transmission Date: 20140515
  Serious: Yes (Hospitalization, Other)
  Sender: FDA-Public Use
  Company Number: US-PFIZER INC-2013232920

PATIENT
  Age: 83 Year
  Sex: Female
  Weight: 72.11 kg

DRUGS (1)
  1. REVATIO [Suspect]
     Dosage: 20 MG, 3X/DAY

REACTIONS (2)
  - Cholecystitis infective [Unknown]
  - Palpitations [Unknown]
